FAERS Safety Report 8045709-6 (Version None)
Quarter: 2012Q1

REPORT INFORMATION
  Report Type: 
  Country: None (occurrence: None)
  Receive Date: 20120112
  Receipt Date: 20120112
  Transmission Date: 20120608
  Serious: No
  Sender: FDA-Public Use
  Company Number: None

PATIENT
  Age: 59 Year
  Sex: Male
  Weight: 89.1 kg

DRUGS (1)
  1. BOCEPREVIR [Suspect]
     Indication: HEPATITIS C
     Dosage: 4 TAB TID PO
     Route: 048
     Dates: start: 20111201

REACTIONS (9)
  - INJECTION SITE PRURITUS [None]
  - PRURITUS GENITAL [None]
  - FATIGUE [None]
  - DIARRHOEA [None]
  - VOMITING [None]
  - NAUSEA [None]
  - DRY THROAT [None]
  - DRY SKIN [None]
  - URTICARIA [None]
